FAERS Safety Report 22027872 (Version 1)
Quarter: 2023Q1

REPORT INFORMATION
  Report Type: Other
  Country: GR (occurrence: None)
  Receive Date: 20230223
  Receipt Date: 20230223
  Transmission Date: 20230418
  Serious: Yes (Hospitalization, Other)
  Sender: FDA-Public Use
  Company Number: GR-Square-000131

PATIENT
  Age: 3 Year
  Sex: Male

DRUGS (5)
  1. ACYCLOVIR [Suspect]
     Active Substance: ACYCLOVIR
     Indication: Ophthalmic herpes zoster
     Dosage: 30 MG/KG/DAY
  2. GANCICLOVIR [Suspect]
     Active Substance: GANCICLOVIR
     Indication: Ophthalmic herpes zoster
     Route: 058
  3. AZIDAMFENICOL [Suspect]
     Active Substance: AZIDAMFENICOL
     Indication: Ophthalmic herpes zoster
  4. FLUOROMETHOLONE [Suspect]
     Active Substance: FLUOROMETHOLONE
     Indication: Ophthalmic herpes zoster
     Dosage: THREE TIMES PER DAY FLUOROMETHOLONE 0.1PERCENT
     Route: 058
  5. ACYCLOVIR [Suspect]
     Active Substance: ACYCLOVIR
     Indication: Ophthalmic herpes zoster
     Route: 048

REACTIONS (8)
  - Therapy non-responder [Recovered/Resolved]
  - Pyrexia [Recovered/Resolved]
  - Conjunctivitis [Recovered/Resolved]
  - Corneal opacity [Recovered/Resolved]
  - Punctate keratitis [Recovered/Resolved]
  - Swelling [Recovered/Resolved]
  - Keratitis [Recovered/Resolved]
  - Iridocyclitis [Recovered/Resolved]
